FAERS Safety Report 8537745-8 (Version None)
Quarter: 2012Q3

REPORT INFORMATION
  Report Type: 
  Country: None (occurrence: None)
  Receive Date: 20120725
  Receipt Date: 20120719
  Transmission Date: 20120928
  Serious: Yes (Death)
  Sender: FDA-Public Use
  Company Number: AU-PFIZER INC-2012166777

PATIENT
  Age: 58 Year
  Sex: Male
  Weight: 77 kg

DRUGS (2)
  1. DESIPRAMINE [Suspect]
     Indication: MANTLE CELL LYMPHOMA
     Dosage: 50 MG, WEEKLY FOR TWO WEEKS
     Route: 048
     Dates: start: 20120509, end: 20120509
  2. TEMSIROLIMUS [Suspect]
     Indication: MANTLE CELL LYMPHOMA
     Dosage: 75 MG, WEEKLY
     Route: 042
     Dates: start: 20120628, end: 20120628

REACTIONS (4)
  - CARDIAC ARREST [None]
  - BRAIN HYPOXIA [None]
  - DISEASE PROGRESSION [None]
  - MANTLE CELL LYMPHOMA [None]
